FAERS Safety Report 5020842-1 (Version None)
Quarter: 2006Q2

REPORT INFORMATION
  Report Type: 
  Country: None (occurrence: None)
  Receive Date: 20060608
  Receipt Date: 20060602
  Transmission Date: 20061013
  Serious: Yes (Hospitalization)
  Sender: FDA-Public Use
  Company Number: FR-ABBOTT-06P-056-0335139-00

PATIENT
  Sex: Male

DRUGS (2)
  1. RYTHMOL [Suspect]
     Indication: CARDIAC FIBRILLATION
     Route: 048
     Dates: end: 20060507
  2. RYTHMOL [Suspect]
     Indication: ATRIAL FLUTTER

REACTIONS (5)
  - FALL [None]
  - HYPERKALAEMIA [None]
  - NODAL RHYTHM [None]
  - SINUS ARRHYTHMIA [None]
  - SINUS BRADYCARDIA [None]
